FAERS Safety Report 14696929 (Version 1)
Quarter: 2018Q1

REPORT INFORMATION
  Report Type: Spontaneous
  Country: US (occurrence: US)
  Receive Date: 20180330
  Receipt Date: 20180330
  Transmission Date: 20180509
  Serious: No
  Sender: FDA-Public Use
  Company Number: US-SA-2017SA090901

PATIENT
  Age: 90 Year
  Sex: Female

DRUGS (1)
  1. ALLEGRA ALLERGY [Suspect]
     Active Substance: FEXOFENADINE HYDROCHLORIDE
     Indication: MULTIPLE ALLERGIES
     Dosage: TOOK ON ALLEGRA ALLERGY 24 HOUR TABLET THIS MORNING AND ANOTHER ONE RECENTLY
     Route: 065
     Dates: start: 20170515

REACTIONS (1)
  - Extra dose administered [Unknown]
